FAERS Safety Report 10901270 (Version 1)
Quarter: 2015Q1

REPORT INFORMATION
  Report Type: Spontaneous
  Country: US (occurrence: None)
  Receive Date: 20150303
  Receipt Date: 20150303
  Transmission Date: 20150721
  Serious: Yes (Other)
  Sender: FDA-Public Use
  Company Number: ADR-2015-00407

PATIENT
  Age: 74 Year
  Sex: Male

DRUGS (1)
  1. LIORESAL [Suspect]
     Active Substance: BACLOFEN
     Indication: MUSCLE SPASTICITY

REACTIONS (6)
  - Medical device complication [None]
  - Dysarthria [None]
  - Aphasia [None]
  - Feeling abnormal [None]
  - Gait disturbance [None]
  - Hypoaesthesia [None]
